FAERS Safety Report 16100465 (Version 1)
Quarter: 2019Q1

REPORT INFORMATION
  Report Type: Spontaneous
  Country: IT (occurrence: IT)
  Receive Date: 20190321
  Receipt Date: 20190321
  Transmission Date: 20190418
  Serious: Yes (Hospitalization)
  Sender: FDA-Public Use
  Company Number: IT-MYLANLABS-2019M1025504

PATIENT
  Age: 78 Year
  Sex: Female

DRUGS (9)
  1. SIMVASTATIN. [Suspect]
     Active Substance: SIMVASTATIN
     Indication: HYPERCHOLESTEROLAEMIA
     Dosage: 1 DOSAGE FORM, QD
     Route: 048
     Dates: start: 20180101, end: 20180811
  2. NADOLOL. [Concomitant]
     Active Substance: NADOLOL
  3. MEDROL [Concomitant]
     Active Substance: METHYLPREDNISOLONE
  4. XARELTO [Concomitant]
     Active Substance: RIVAROXABAN
  5. METFORMIN [Suspect]
     Active Substance: METFORMIN HYDROCHLORIDE
     Indication: DIABETES MELLITUS
     Dosage: 500 MILLIGRAM, QD
     Route: 048
     Dates: start: 20180101, end: 20180811
  6. PANTORC [Concomitant]
     Active Substance: PANTOPRAZOLE SODIUM
  7. RITMODAN                           /00271801/ [Concomitant]
  8. ALDACTONE [Suspect]
     Active Substance: SPIRONOLACTONE
     Indication: HYPERTENSION
     Dosage: 1 DOSAGE FORM, QD
     Route: 048
     Dates: start: 20180101, end: 20180811
  9. PLAUNAC [Suspect]
     Active Substance: OLMESARTAN MEDOXOMIL
     Indication: HYPERTENSION
     Dosage: 1 DOSAGE FORM, QD
     Route: 048
     Dates: start: 20180101, end: 20180101

REACTIONS (6)
  - Pain in extremity [Unknown]
  - Pulmonary oedema [Unknown]
  - Hyperhidrosis [Unknown]
  - Asthenia [Unknown]
  - Dyspnoea [Unknown]
  - Hepatorenal failure [Unknown]

NARRATIVE: CASE EVENT DATE: 20180811
